FAERS Safety Report 17751323 (Version 2)
Quarter: 2020Q2

REPORT INFORMATION
  Report Type: Spontaneous
  Country: CA (occurrence: CA)
  Receive Date: 20200506
  Receipt Date: 20200526
  Transmission Date: 20200714
  Serious: Yes (Other)
  Sender: FDA-Public Use
  Company Number: CA-TEVA-2020-CA-1231250

PATIENT
  Age: 57 Year
  Sex: Female

DRUGS (23)
  1. EXEMESTANE. [Suspect]
     Active Substance: EXEMESTANE
     Indication: BREAST CANCER METASTATIC
     Route: 065
  2. IBRANCE [Suspect]
     Active Substance: PALBOCICLIB
     Indication: BREAST CANCER METASTATIC
     Dosage: 100 MILLIGRAM DAILY;
     Route: 048
  3. UBIDECARENONE [Concomitant]
     Active Substance: UBIDECARENONE
  4. VITAMIN A [Concomitant]
     Active Substance: VITAMIN A
  5. TAMOXIFEN [Suspect]
     Active Substance: TAMOXIFEN
     Indication: BREAST CANCER METASTATIC
     Route: 065
  6. CALCIUM [Concomitant]
     Active Substance: CALCIUM
  7. CAPECITABINE. [Suspect]
     Active Substance: CAPECITABINE
     Indication: BREAST CANCER METASTATIC
     Route: 065
  8. ERGOCALCIFEROL. [Concomitant]
     Active Substance: ERGOCALCIFEROL
  9. MAGNESIUM [Concomitant]
     Active Substance: MAGNESIUM
  10. PYRIDOXINE [Concomitant]
     Active Substance: PYRIDOXINE
  11. CONVALLARIA MAJALIS. [Concomitant]
     Active Substance: CONVALLARIA MAJALIS
  12. PROXYPHYLLINE [Concomitant]
     Active Substance: PROXYPHYLLINE
  13. VITAMIN B1 [Concomitant]
     Active Substance: THIAMINE HYDROCHLORIDE
  14. LETROZOLE. [Suspect]
     Active Substance: LETROZOLE
     Indication: BREAST CANCER METASTATIC
     Route: 065
  15. CRATAEGUS LAEVIGATA [Concomitant]
  16. NICOTINAMIDE [Concomitant]
     Active Substance: NIACINAMIDE
  17. ZINC. [Concomitant]
     Active Substance: ZINC
  18. ZOMETA [Concomitant]
     Active Substance: ZOLEDRONIC ACID
     Route: 065
  19. CYANOCOBALAMIN. [Concomitant]
     Active Substance: CYANOCOBALAMIN
  20. DEXPANTHENOL. [Concomitant]
     Active Substance: DEXPANTHENOL
  21. METHADONE [Concomitant]
     Active Substance: METHADONE HYDROCHLORIDE
     Route: 065
  22. NAPROXEN. [Concomitant]
     Active Substance: NAPROXEN
     Route: 065
  23. RIBOFLAVIN [Concomitant]
     Active Substance: RIBOFLAVIN

REACTIONS (6)
  - Fatigue [Unknown]
  - Tumour marker increased [Unknown]
  - Asthenia [Unknown]
  - Pain [Unknown]
  - Neutropenia [Unknown]
  - Malignant neoplasm progression [Unknown]
